FAERS Safety Report 5359584-1 (Version None)
Quarter: 2007Q2

REPORT INFORMATION
  Report Type: 
  Country: None (occurrence: None)
  Receive Date: 20070615
  Receipt Date: 20070607
  Transmission Date: 20071010
  Serious: Yes (Other)
  Sender: FDA-Public Use
  Company Number: US-GENENTECH-240224

PATIENT
  Sex: Female

DRUGS (3)
  1. SOMATROPIN [Suspect]
     Indication: TURNER'S SYNDROME
     Dosage: 2 UNK, 7/WEEK
     Route: 065
     Dates: start: 20050108, end: 20070419
  2. CONCERTA [Concomitant]
     Indication: ATTENTION DEFICIT/HYPERACTIVITY DISORDER
     Dosage: 27 MG, BID
     Route: 048
  3. LEVOTHYROXINE SODIUM [Concomitant]
     Indication: HYPOTHYROIDISM
     Dosage: 62.5 A?G, QD
     Route: 048

REACTIONS (2)
  - CHEST PAIN [None]
  - VENTRICULAR HYPERTROPHY [None]
